FAERS Safety Report 8333422-7 (Version None)
Quarter: 2012Q2

REPORT INFORMATION
  Report Type: 
  Country: None (occurrence: None)
  Receive Date: 20120503
  Receipt Date: 20120430
  Transmission Date: 20120825
  Serious: Yes (Other)
  Sender: FDA-Public Use
  Company Number: US-PFIZER INC-2012094273

PATIENT
  Sex: Male
  Weight: 99.773 kg

DRUGS (4)
  1. ZAROXOLYN [Suspect]
     Indication: HYPERTENSION
     Dosage: 2.5 MG, 1X/DAY
     Route: 048
     Dates: end: 20120330
  2. ALLOPURINOL [Concomitant]
     Indication: GOUT
     Dosage: UNK
  3. REVATIO [Suspect]
     Indication: PULMONARY EMBOLISM
     Dosage: 20 MG, 3X/DAY
     Route: 048
     Dates: end: 20120411
  4. TRACLEER [Concomitant]
     Dosage: UNK

REACTIONS (8)
  - MICTURITION DISORDER [None]
  - DYSPNOEA [None]
  - DYSURIA [None]
  - CARDIAC DISCOMFORT [None]
  - ASTHENIA [None]
  - HEART RATE DECREASED [None]
  - BODY HEIGHT DECREASED [None]
  - GAIT DISTURBANCE [None]
